FAERS Safety Report 4979381-6 (Version None)
Quarter: 2006Q2

REPORT INFORMATION
  Report Type: 
  Country: None (occurrence: None)
  Receive Date: 20060421
  Receipt Date: 20050928
  Transmission Date: 20061013
  Serious: Yes (Hospitalization, Other)
  Sender: FDA-Public Use
  Company Number: US-MERCK-0509USA04615

PATIENT
  Age: 49 Year
  Sex: Male
  Weight: 92 kg

DRUGS (7)
  1. BEXTRA [Suspect]
     Route: 065
  2. CELEBREX [Suspect]
     Route: 065
  3. VIOXX [Suspect]
     Indication: PAIN
     Route: 048
     Dates: start: 20010201, end: 20020531
  4. CARDIZEM [Concomitant]
     Route: 065
  5. LIPITOR [Concomitant]
     Route: 065
  6. TRIAMTERENE [Concomitant]
     Route: 065
  7. INSULIN [Concomitant]
     Route: 065

REACTIONS (10)
  - BALANCE DISORDER [None]
  - CARPAL TUNNEL SYNDROME [None]
  - CEREBROVASCULAR ACCIDENT [None]
  - DIZZINESS [None]
  - HOSPITALISATION [None]
  - HYPOAESTHESIA [None]
  - PAIN IN EXTREMITY [None]
  - PERIPHERAL SENSORY NEUROPATHY [None]
  - SOMNOLENCE [None]
  - TRANSIENT ISCHAEMIC ATTACK [None]
